FAERS Safety Report 16867858 (Version 1)
Quarter: 2019Q3

REPORT INFORMATION
  Report Type: Spontaneous
  Country: US (occurrence: US)
  Receive Date: 20190930
  Receipt Date: 20190930
  Transmission Date: 20191005
  Serious: No
  Sender: FDA-Public Use
  Company Number: US-GILEAD-2019-0430699

PATIENT
  Age: 35 Year
  Sex: Male

DRUGS (2)
  1. PROTEIN [Concomitant]
     Active Substance: PROTEIN
  2. EPCLUSA [Suspect]
     Active Substance: SOFOSBUVIR\VELPATASVIR
     Indication: CHRONIC HEPATITIS C
     Dosage: 1 DOSAGE FORM, QD
     Route: 048
     Dates: start: 201906

REACTIONS (2)
  - Fatigue [Recovering/Resolving]
  - Somnolence [Recovering/Resolving]
